FAERS Safety Report 16959834 (Version 4)
Quarter: 2019Q4

REPORT INFORMATION
  Report Type: Spontaneous
  Country: CA (occurrence: CA)
  Receive Date: 20191025
  Receipt Date: 20191219
  Transmission Date: 20200122
  Serious: Yes (Hospitalization, Other)
  Sender: FDA-Public Use
  Company Number: CA-CELLTRION INC.-2019CA022418

PATIENT

DRUGS (10)
  1. PLAQUENIL [Concomitant]
     Active Substance: HYDROXYCHLOROQUINE SULFATE
     Dosage: 400 MG, UNK
     Dates: start: 201811
  2. INFLECTRA [Suspect]
     Active Substance: INFLIXIMAB-DYYB
     Dosage: UNK
  3. HYDROCORTISONE. [Concomitant]
     Active Substance: HYDROCORTISONE
     Dosage: 100 MG, UNK
     Route: 042
  4. INFLECTRA [Suspect]
     Active Substance: INFLIXIMAB-DYYB
     Dosage: 3 MG/KG, Q 0, 2, 6 WEEKS MAINTENANCE EVERY 4 WEEKS FOR 3 MONTHS
     Route: 042
     Dates: start: 20191113
  5. ACETAMINOPHEN. [Concomitant]
     Active Substance: ACETAMINOPHEN
     Dosage: UNK (325-650 MG)
     Route: 048
  6. DIPHENHYDRAMINE. [Concomitant]
     Active Substance: DIPHENHYDRAMINE
     Dosage: UNK (25-50 MG)
     Route: 048
  7. DIMENHYDRINATE. [Concomitant]
     Active Substance: DIMENHYDRINATE
     Dosage: 50 MG, UNK
     Route: 048
  8. INFLECTRA [Suspect]
     Active Substance: INFLIXIMAB-DYYB
     Indication: RHEUMATOID ARTHRITIS
     Dosage: 3 MG/KG, Q 0, 2, 6 WEEKS MAINTENANCE EVERY 4 WEEKS FOR 3 MONTHS
     Route: 042
     Dates: start: 20190710
  9. INFLECTRA [Suspect]
     Active Substance: INFLIXIMAB-DYYB
     Dosage: 3 MG/KG, Q 0, 2, 6 WEEKS MAINTENANCE EVERY 4 WEEKS FOR 3 MONTHS
     Route: 042
     Dates: start: 20190821
  10. INFLECTRA [Suspect]
     Active Substance: INFLIXIMAB-DYYB
     Dosage: 3 MG/KG, Q 0, 2, 6 WEEKS MAINTENANCE EVERY 4 WEEKS FOR 3 MONTHS
     Route: 042
     Dates: start: 20190918

REACTIONS (10)
  - Asthma [Unknown]
  - Wound infection [Unknown]
  - Scab [Unknown]
  - Chest X-ray abnormal [Unknown]
  - Rhinorrhoea [Unknown]
  - Off label use [Unknown]
  - Nausea [Not Recovered/Not Resolved]
  - Nasopharyngitis [Unknown]
  - Intentional product use issue [Unknown]
  - Abdominal discomfort [Not Recovered/Not Resolved]

NARRATIVE: CASE EVENT DATE: 201911
